FAERS Safety Report 10977302 (Version 2)
Quarter: 2015Q2

REPORT INFORMATION
  Report Type: Report from Study
  Country: US (occurrence: US)
  Receive Date: 20150402
  Receipt Date: 20150514
  Transmission Date: 20150821
  Serious: Yes (Hospitalization)
  Sender: FDA-Public Use
  Company Number: US-BIOGENIDEC-2015BI041805

PATIENT
  Age: 68 Year
  Sex: Female

DRUGS (1)
  1. TYSABRI [Suspect]
     Active Substance: NATALIZUMAB
     Indication: MULTIPLE SCLEROSIS
     Route: 042
     Dates: start: 20140206

REACTIONS (7)
  - Muscle spasms [Recovered/Resolved]
  - Visual acuity reduced [Not Recovered/Not Resolved]
  - Arthropathy [Recovered/Resolved]
  - Joint swelling [Recovered/Resolved]
  - Vision blurred [Recovered/Resolved]
  - Loss of control of legs [Recovered/Resolved]
  - Fall [Recovered/Resolved]

NARRATIVE: CASE EVENT DATE: 2014
